FAERS Safety Report 9537802 (Version 1)
Quarter: 2013Q3

REPORT INFORMATION
  Report Type: Spontaneous
  Country: US (occurrence: US)
  Receive Date: 20130919
  Receipt Date: 20130919
  Transmission Date: 20140515
  Serious: Yes (Other)
  Sender: FDA-Public Use
  Company Number: US-BAXTER-2013BAX036108

PATIENT
  Age: 65 Year
  Sex: Female

DRUGS (3)
  1. OSMITROL INJECTION [Suspect]
     Indication: INTRAOCULAR PRESSURE INCREASED
     Dosage: 20% IN 500 ML OF WATER
     Route: 042
  2. ACETAZOLAMIDE SODIUM [Concomitant]
     Indication: INTRAOCULAR PRESSURE TEST
     Route: 048
  3. PILOCARPINE [Concomitant]
     Indication: INTRAOCULAR PRESSURE TEST
     Route: 065

REACTIONS (1)
  - Anaphylactic reaction [Recovered/Resolved]
